FAERS Safety Report 5637917-6 (Version None)
Quarter: 2008Q1

REPORT INFORMATION
  Report Type: 
  Country: None (occurrence: None)
  Receive Date: 20080222
  Receipt Date: 20080222
  Transmission Date: 20080703
  Serious: Yes (Hospitalization)
  Sender: FDA-Public Use
  Company Number: None

PATIENT
  Age: 80 Year
  Sex: Male
  Weight: 64 kg

DRUGS (5)
  1. WARFARIN SODIUM [Suspect]
     Indication: HEART VALVE REPLACEMENT
     Dosage: 2.5MG DAILY PO
     Route: 048
     Dates: start: 19960201
  2. ATENOLOL [Concomitant]
  3. LIPITOR [Concomitant]
  4. REMERON [Concomitant]
  5. FLOMAX [Concomitant]

REACTIONS (6)
  - CHROMATURIA [None]
  - CONTUSION [None]
  - FALL [None]
  - INTERNATIONAL NORMALISED RATIO INCREASED [None]
  - NORMOCHROMIC NORMOCYTIC ANAEMIA [None]
  - ORTHOSTATIC HYPOTENSION [None]
